FAERS Safety Report 20490542 (Version 1)
Quarter: 2022Q1

REPORT INFORMATION
  Report Type: Spontaneous
  Country: RU (occurrence: RU)
  Receive Date: 20220218
  Receipt Date: 20220218
  Transmission Date: 20220423
  Serious: Yes (Death, Other)
  Sender: FDA-Public Use
  Company Number: RU-Fresenius Kabi-FK202201888

PATIENT
  Age: 39 Week
  Sex: Male

DRUGS (3)
  1. AZITHROMYCIN ANHYDROUS [Suspect]
     Active Substance: AZITHROMYCIN ANHYDROUS
     Indication: COVID-19
     Route: 050
  2. AMOXICILLIN\CLAVULANATE POTASSIUM [Suspect]
     Active Substance: AMOXICILLIN\CLAVULANATE POTASSIUM
     Indication: COVID-19
     Route: 050
  3. LOPINAVIR\RITONAVIR [Suspect]
     Active Substance: LOPINAVIR\RITONAVIR
     Indication: COVID-19
     Route: 050

REACTIONS (6)
  - Neonatal asphyxia [Fatal]
  - Pneumonia aspiration [Fatal]
  - Viral infection [Unknown]
  - Placental insufficiency [Unknown]
  - Placental disorder [Unknown]
  - Foetal exposure during pregnancy [Unknown]
